FAERS Safety Report 5069440-4 (Version None)
Quarter: 2006Q3

REPORT INFORMATION
  Report Type: 
  Country: None (occurrence: None)
  Receive Date: 20060803
  Receipt Date: 20060118
  Transmission Date: 20061208
  Serious: Yes (Hospitalization)
  Sender: FDA-Public Use
  Company Number: US-AMGEN-US165417

PATIENT
  Sex: Female
  Weight: 79.9 kg

DRUGS (10)
  1. DARBEPOETIN ALFA [Suspect]
     Indication: ANAEMIA OF MALIGNANT DISEASE
     Route: 058
     Dates: start: 20051221, end: 20060116
  2. VYTORIN [Suspect]
     Route: 065
  3. NEULASTA [Suspect]
     Indication: CHEMOTHERAPY
     Route: 065
  4. ADRIAMYCIN PFS [Concomitant]
     Route: 065
  5. CYTOXAN [Concomitant]
     Route: 065
  6. TAXOTERE [Concomitant]
     Route: 065
  7. INSULIN [Concomitant]
     Route: 065
  8. DECADRON [Concomitant]
     Route: 065
  9. ALOXI [Concomitant]
     Route: 065
  10. INFLUENZA VACCINE [Concomitant]
     Route: 065

REACTIONS (2)
  - MYOSITIS [None]
  - PAIN IN EXTREMITY [None]
